FAERS Safety Report 12217464 (Version 2)
Quarter: 2016Q2

REPORT INFORMATION
  Report Type: Report from Study
  Country: US (occurrence: US)
  Receive Date: 20160329
  Receipt Date: 20160411
  Transmission Date: 20160815
  Serious: Yes (Other)
  Sender: FDA-Public Use
  Company Number: PHEH2016US007227

PATIENT
  Sex: Female
  Weight: 54.42 kg

DRUGS (3)
  1. EXEMESTANE. [Suspect]
     Active Substance: EXEMESTANE
     Indication: PRODUCT USED FOR UNKNOWN INDICATION
     Route: 065
  2. AFINITOR [Suspect]
     Active Substance: EVEROLIMUS
     Indication: BREAST CANCER
     Dosage: 10 MG, QD (FOR ABOUT THREE WEEKS)
     Route: 065
  3. AFINITOR [Suspect]
     Active Substance: EVEROLIMUS
     Dosage: 5 MG, UNK
     Route: 065

REACTIONS (10)
  - Mouth ulceration [Unknown]
  - Fungating wound [Unknown]
  - Tongue disorder [Unknown]
  - Weight decreased [Unknown]
  - Memory impairment [Unknown]
  - Epistaxis [Recovered/Resolved]
  - Rash [Unknown]
  - Muscle spasms [Unknown]
  - Feeding disorder [Unknown]
  - Glossodynia [Unknown]
